FAERS Safety Report 9927800 (Version 2)
Quarter: 2014Q2

REPORT INFORMATION
  Report Type: Spontaneous
  Country: JP (occurrence: JP)
  Receive Date: 20140227
  Receipt Date: 20140429
  Transmission Date: 20141212
  Serious: Yes (Other)
  Sender: FDA-Public Use
  Company Number: JP-ROCHE-1355657

PATIENT
  Age: 68 Year
  Sex: Female

DRUGS (7)
  1. LUCENTIS [Suspect]
     Indication: RETINAL VEIN OCCLUSION
     Route: 050
     Dates: start: 20130907
  2. LUCENTIS [Suspect]
     Route: 050
     Dates: start: 20131021
  3. LUCENTIS [Suspect]
     Dosage: RIGHT EYE
     Route: 050
     Dates: start: 20140106
  4. LUCENTIS [Suspect]
     Dosage: RIGHT EYE
     Route: 050
     Dates: start: 20140331
  5. EXFORGE [Suspect]
     Indication: HYPERTENSION
     Route: 048
     Dates: start: 201310
  6. AMLODIN [Suspect]
     Indication: HYPERTENSION
     Route: 048
     Dates: start: 201305, end: 201310
  7. AMLODIN [Suspect]
     Route: 048
     Dates: start: 201311

REACTIONS (1)
  - Blood pressure increased [Recovering/Resolving]
